FAERS Safety Report 21564720 (Version 1)
Quarter: 2022Q4

REPORT INFORMATION
  Report Type: Spontaneous
  Country: US (occurrence: US)
  Receive Date: 20221108
  Receipt Date: 20221108
  Transmission Date: 20230113
  Serious: No
  Sender: FDA-Public Use
  Company Number: US-drreddys-SPO/USA/22/0156528

PATIENT
  Age: 49 Year

DRUGS (1)
  1. ACCUTANE [Suspect]
     Active Substance: ISOTRETINOIN
     Indication: Acne
     Dosage: RMA ISSUE DATE: 16 SEPTEMBER 2022; 03:50:12 PM, 16 AUGUST 2022 11:45:34 AM

REACTIONS (1)
  - Treatment noncompliance [Unknown]
